FAERS Safety Report 21182480 (Version 1)
Quarter: 2022Q3

REPORT INFORMATION
  Report Type: Spontaneous
  Country: JP (occurrence: JP)
  Receive Date: 20220808
  Receipt Date: 20220808
  Transmission Date: 20221026
  Serious: Yes (Other)
  Sender: FDA-Public Use
  Company Number: JP-SUN PHARMACEUTICAL INDUSTRIES LTD-2022R1-347832

PATIENT
  Age: 53 Year
  Sex: Male

DRUGS (3)
  1. PHENYTOIN [Suspect]
     Active Substance: PHENYTOIN
     Indication: Epilepsy
     Dosage: UNK,21.2 MICROG/ML
     Route: 065
  2. CARBAMAZEPINE [Concomitant]
     Active Substance: CARBAMAZEPINE
     Indication: Epilepsy
     Dosage: UNK,2.1 MICROG/ML
     Route: 065
  3. VALPROIC ACID [Concomitant]
     Active Substance: VALPROIC ACID
     Indication: Epilepsy
     Dosage: UNK,33.5  MICROG/ML
     Route: 065

REACTIONS (3)
  - Ataxia [Recovering/Resolving]
  - Transient ischaemic attack [Recovered/Resolved]
  - Toxicity to various agents [Unknown]
